FAERS Safety Report 24943235 (Version 1)
Quarter: 2025Q1

REPORT INFORMATION
  Report Type: Spontaneous
  Country: ES (occurrence: ES)
  Receive Date: 20250207
  Receipt Date: 20250207
  Transmission Date: 20250409
  Serious: Yes (Hospitalization)
  Sender: AMGEN
  Company Number: ES-SANDOZ-SDZ2023ES013158

PATIENT
  Age: 57 Year
  Sex: Male
  Weight: 68.1 kg

DRUGS (17)
  1. BEVACIZUMAB [Suspect]
     Active Substance: BEVACIZUMAB
     Indication: Colorectal cancer metastatic
     Dosage: 364 MG, Q2W
     Route: 040
     Dates: start: 20230223, end: 20230807
  2. BEVACIZUMAB [Suspect]
     Active Substance: BEVACIZUMAB
     Dosage: 364 MG, Q2W
     Route: 040
     Dates: start: 20230825
  3. FLUOROURACIL [Suspect]
     Active Substance: FLUOROURACIL
     Indication: Colorectal cancer metastatic
     Dosage: 746 MG, Q2W
     Route: 040
     Dates: start: 20230223, end: 20230807
  4. FLUOROURACIL [Suspect]
     Active Substance: FLUOROURACIL
     Dosage: 4480 MG, Q2W
     Route: 040
     Dates: start: 20230223, end: 20230807
  5. FLUOROURACIL [Suspect]
     Active Substance: FLUOROURACIL
     Dosage: 746 MG, Q2W
     Route: 040
     Dates: start: 20230825
  6. FLUOROURACIL [Suspect]
     Active Substance: FLUOROURACIL
     Dosage: 4480 MG, Q2W
     Route: 040
     Dates: start: 20230825
  7. IRINOTECAN [Suspect]
     Active Substance: IRINOTECAN
     Indication: Colorectal cancer metastatic
     Dosage: 336 MG, Q2W
     Route: 040
     Dates: start: 20230223, end: 20230807
  8. IRINOTECAN [Suspect]
     Active Substance: IRINOTECAN
     Dosage: 336 MG, Q2W
     Route: 040
     Dates: start: 20230825
  9. LEUCOVORIN [Suspect]
     Active Substance: LEUCOVORIN\LEUCOVORIN CALCIUM
     Indication: Colorectal cancer metastatic
     Dosage: 746 MG, Q2W
     Route: 040
     Dates: start: 20230223, end: 20230807
  10. LEUCOVORIN [Suspect]
     Active Substance: LEUCOVORIN\LEUCOVORIN CALCIUM
     Dosage: 746 MG, Q2W
     Route: 040
     Dates: start: 20230825
  11. IBUPROFEN [Concomitant]
     Active Substance: IBUPROFEN
     Indication: Pain prophylaxis
     Route: 065
     Dates: start: 20230222
  12. ACETAMINOPHEN [Concomitant]
     Active Substance: ACETAMINOPHEN
     Indication: Pain prophylaxis
     Route: 065
     Dates: start: 20230222
  13. BUTYLSCOPOLAMINE [Concomitant]
     Active Substance: BUTYLSCOPOLAMINE
     Indication: Abdominal pain
     Route: 065
     Dates: start: 20230308
  14. BUTYLSCOPOLAMINE [Concomitant]
     Active Substance: BUTYLSCOPOLAMINE
     Indication: Abdominal pain
     Route: 065
     Dates: start: 20230628
  15. BUTYLSCOPOLAMINE [Concomitant]
     Active Substance: BUTYLSCOPOLAMINE
     Indication: Abdominal pain
  16. LOPERAMIDE [Concomitant]
     Active Substance: LOPERAMIDE
     Indication: Diarrhoea
     Route: 065
     Dates: start: 20230614
  17. MAGNESIUM [Concomitant]
     Active Substance: MAGNESIUM
     Indication: Hypomagnesaemia
     Route: 065
     Dates: start: 202308, end: 202308

REACTIONS (1)
  - Pyrexia [Recovered/Resolved]

NARRATIVE: CASE EVENT DATE: 20230807
